FAERS Safety Report 18682291 (Version 1)
Quarter: 2020Q4

REPORT INFORMATION
  Report Type: Spontaneous
  Country: US (occurrence: US)
  Receive Date: 20201229
  Receipt Date: 20201229
  Transmission Date: 20210114
  Serious: Yes (Other)
  Sender: FDA-Public Use
  Company Number: None

PATIENT
  Sex: Female

DRUGS (1)
  1. IMITREX [Suspect]
     Active Substance: SUMATRIPTAN SUCCINATE

REACTIONS (6)
  - Adverse drug reaction [None]
  - Dyspnoea [None]
  - Overdose [None]
  - Hot flush [None]
  - Feeling cold [None]
  - Paraesthesia [None]
